FAERS Safety Report 5059782-0 (Version None)
Quarter: 2006Q3

REPORT INFORMATION
  Report Type: 
  Country: None (occurrence: None)
  Receive Date: 20060724
  Receipt Date: 20060712
  Transmission Date: 20061208
  Serious: Yes (Other)
  Sender: FDA-Public Use
  Company Number: US-GLAXOSMITHKLINE-A0612042A

PATIENT
  Age: 72 Year
  Sex: Male

DRUGS (11)
  1. COREG [Suspect]
     Dosage: 12.5MG TWICE PER DAY
     Route: 048
     Dates: start: 20051101
  2. LOSARTAN POSTASSIUM [Concomitant]
  3. GLIPIZIDE [Concomitant]
  4. PREDNISONE [Concomitant]
  5. COUMADIN [Concomitant]
  6. ZOCOR [Concomitant]
  7. CLARITIN [Concomitant]
  8. SINGULAIR [Concomitant]
  9. FLONASE [Concomitant]
  10. FLOVENT [Concomitant]
  11. ALBUTEROL SPIROS [Concomitant]

REACTIONS (4)
  - ASTHMA [None]
  - C-REACTIVE PROTEIN [None]
  - PULMONARY CONGESTION [None]
  - UPPER RESPIRATORY TRACT INFECTION [None]
